FAERS Safety Report 6954864-8 (Version None)
Quarter: 2010Q3

REPORT INFORMATION
  Report Type: 
  Country: None (occurrence: None)
  Receive Date: 20100830
  Receipt Date: 20100730
  Transmission Date: 20110219
  Serious: No
  Sender: FDA-Public Use
  Company Number: US-BAYER-201019128BCC

PATIENT
  Sex: Female

DRUGS (1)
  1. ALEVE [Suspect]
     Indication: HEADACHE
     Dosage: TOOK 6 TO 8 ALEVES IN LESS THAN 24 HOUS
     Route: 048
     Dates: start: 20100701

REACTIONS (1)
  - NO ADVERSE EVENT [None]
